FAERS Safety Report 16335444 (Version 1)
Quarter: 2019Q2

REPORT INFORMATION
  Report Type: Spontaneous
  Country: US (occurrence: US)
  Receive Date: 20190521
  Receipt Date: 20190521
  Transmission Date: 20190711
  Serious: No
  Sender: FDA-Public Use
  Company Number: US-009507513-1904USA010179

PATIENT
  Age: 23 Year
  Sex: Female
  Weight: 113.38 kg

DRUGS (1)
  1. NEXPLANON [Suspect]
     Active Substance: ETONOGESTREL
     Dosage: IMPLANT
     Route: 059
     Dates: start: 20170601, end: 20190417

REACTIONS (5)
  - Vaginal haemorrhage [Unknown]
  - Implant site discolouration [Unknown]
  - Nausea [Unknown]
  - Device breakage [Recovered/Resolved]
  - Mood swings [Unknown]

NARRATIVE: CASE EVENT DATE: 20190417
